FAERS Safety Report 5836277-5 (Version None)
Quarter: 2008Q3

REPORT INFORMATION
  Report Type: 
  Country: None (occurrence: None)
  Receive Date: 20080807
  Receipt Date: 20080728
  Transmission Date: 20090109
  Serious: Yes (Hospitalization, Other)
  Sender: FDA-Public Use
  Company Number: US-WYE-H04677208

PATIENT
  Sex: Male
  Weight: 79 kg

DRUGS (10)
  1. EFFEXOR [Suspect]
     Indication: DEPRESSION
     Dates: start: 20041201
  2. EFFEXOR [Interacting]
     Dosage: ^WAS TITRATED^
  3. EFFEXOR [Interacting]
  4. RISPERDAL [Concomitant]
     Dosage: UNKNOWN
  5. MIDRIN [Interacting]
     Dosage: 2 CAPS AS NEEDED
  6. NEOMYCIN SULFATE TAB [Concomitant]
     Indication: SKIN LACERATION
     Dosage: APPLY DAILY AS NEEDED
  7. KLONOPIN [Concomitant]
     Dates: start: 20050209, end: 20050211
  8. KLONOPIN [Concomitant]
     Dates: start: 20050212, end: 20050312
  9. KLONOPIN [Concomitant]
     Dates: start: 20050313, end: 20050411
  10. VISTARIL [Concomitant]

REACTIONS (13)
  - ABNORMAL BEHAVIOUR [None]
  - ANXIETY [None]
  - DEPRESSION [None]
  - DRUG INTERACTION [None]
  - EATING DISORDER [None]
  - HALLUCINATION, AUDITORY [None]
  - HOMICIDAL IDEATION [None]
  - INSOMNIA [None]
  - MANIA [None]
  - PARANOIA [None]
  - PSYCHOTIC DISORDER [None]
  - SCREAMING [None]
  - SUICIDAL IDEATION [None]
